FAERS Safety Report 22830313 (Version 4)
Quarter: 2025Q4

REPORT INFORMATION
  Report Type: Report from Study
  Country: US (occurrence: None)
  Receive Date: 20230817
  Receipt Date: 20251219
  Transmission Date: 20260119
  Serious: Yes (Hospitalization)
  Sender: UCB
  Company Number: US-UCBSA-2023040909

PATIENT

DRUGS (2)
  1. FENFLURAMINE [Suspect]
     Active Substance: FENFLURAMINE
     Indication: Lennox-Gastaut syndrome
     Dosage: 4.5 ML AM AND 5ML HS
  2. FENFLURAMINE [Suspect]
     Active Substance: FENFLURAMINE
     Dosage: 22 MILLIGRAM, ONCE DAILY (QD)

REACTIONS (2)
  - Hospitalisation [Unknown]
  - Product use issue [Unknown]
